FAERS Safety Report 5526046-8 (Version None)
Quarter: 2007Q4

REPORT INFORMATION
  Report Type: 
  Country: None (occurrence: None)
  Receive Date: 20071126
  Receipt Date: 20071121
  Transmission Date: 20080405
  Serious: Yes (Death, Other)
  Sender: FDA-Public Use
  Company Number: US-BAYER-200714079BWH

PATIENT
  Sex: Male

DRUGS (1)
  1. TRASYLOL [Suspect]
     Indication: CORONARY ARTERY BYPASS
     Route: 042
     Dates: start: 20060101

REACTIONS (20)
  - ACTIVITIES OF DAILY LIVING IMPAIRED [None]
  - ANHEDONIA [None]
  - ANXIETY [None]
  - CARDIAC PACEMAKER REVISION [None]
  - CHOLECYSTECTOMY [None]
  - DEATH [None]
  - DEPRESSION [None]
  - EMOTIONAL DISTRESS [None]
  - FEAR [None]
  - FEEDING TUBE COMPLICATION [None]
  - GASTROINTESTINAL FISTULA [None]
  - HAND AMPUTATION [None]
  - HYPOTENSION [None]
  - INJURY [None]
  - LEG AMPUTATION [None]
  - MENTAL DISORDER [None]
  - PAIN [None]
  - RENAL FAILURE [None]
  - WOUND DECOMPOSITION [None]
  - WOUND INFECTION [None]
